FAERS Safety Report 19862839 (Version 1)
Quarter: 2021Q3

REPORT INFORMATION
  Report Type: Spontaneous
  Country: IT (occurrence: IT)
  Receive Date: 20210921
  Receipt Date: 20210921
  Transmission Date: 20211014
  Serious: Yes (Other)
  Sender: FDA-Public Use
  Company Number: IT-PFIZER INC-202101165528

PATIENT
  Age: 19 Year
  Sex: Male

DRUGS (13)
  1. PALIPERIDONE. [Suspect]
     Active Substance: PALIPERIDONE
     Indication: PRODUCT USED FOR UNKNOWN INDICATION
     Route: 065
  2. RISPERIDONE. [Suspect]
     Active Substance: RISPERIDONE
     Indication: PRODUCT USED FOR UNKNOWN INDICATION
     Route: 065
  3. ALPRAZOLAM. [Suspect]
     Active Substance: ALPRAZOLAM
     Indication: PHOBIA
  4. CHLORPROMAZINE. [Suspect]
     Active Substance: CHLORPROMAZINE
     Indication: CONVERSION DISORDER
     Route: 065
  5. BROMAZEPAM [Suspect]
     Active Substance: BROMAZEPAM
     Indication: PANIC ATTACK
  6. ALPRAZOLAM. [Suspect]
     Active Substance: ALPRAZOLAM
     Indication: PANIC ATTACK
  7. ALPRAZOLAM. [Suspect]
     Active Substance: ALPRAZOLAM
     Indication: GENERALISED ANXIETY DISORDER
  8. HALOPERIDOL. [Suspect]
     Active Substance: HALOPERIDOL
     Indication: CONVERSION DISORDER
  9. ORPHENADRINE HYDROCHLORIDE [Suspect]
     Active Substance: ORPHENADRINE HYDROCHLORIDE
     Indication: CONVERSION DISORDER
     Route: 065
  10. MELATONIN [Suspect]
     Active Substance: MELATONIN
     Indication: CONVERSION DISORDER
     Route: 065
  11. BROMAZEPAM [Suspect]
     Active Substance: BROMAZEPAM
     Indication: CONVERSION DISORDER
  12. BROMAZEPAM [Suspect]
     Active Substance: BROMAZEPAM
     Indication: GENERALISED ANXIETY DISORDER
  13. HALOPERIDOL. [Suspect]
     Active Substance: HALOPERIDOL
     Indication: PHOBIA

REACTIONS (1)
  - Drug resistance [Unknown]
